FAERS Safety Report 7164723-6 (Version None)
Quarter: 2010Q4

REPORT INFORMATION
  Report Type: 
  Country: None (occurrence: None)
  Receive Date: 20101215
  Receipt Date: 20101207
  Transmission Date: 20110411
  Serious: Yes (Other)
  Sender: FDA-Public Use
  Company Number: US-PFIZER INC-2010166591

PATIENT
  Sex: Female

DRUGS (14)
  1. NEURONTIN [Suspect]
     Indication: NERVOUS SYSTEM DISORDER
     Dosage: 600 MG, UNK
     Route: 048
     Dates: end: 20100201
  2. NEURONTIN [Suspect]
     Indication: MUSCLE DISORDER
  3. THEOPHYLLINE [Concomitant]
     Indication: DYSPNOEA
     Dosage: UNK, 2X/DAILY
  4. TRAMADOL [Concomitant]
     Dosage: UNK
  5. METFORMIN [Concomitant]
     Dosage: UNK
  6. GLIPIZIDE [Concomitant]
     Dosage: UNK
  7. HYDROCORTISONE ACETATE [Concomitant]
     Dosage: UNK
  8. ADVAIR [Concomitant]
     Dosage: UNK
  9. MAXAIR [Concomitant]
     Dosage: UNK
  10. EFFEXOR [Concomitant]
     Dosage: UNK
  11. XANAX [Concomitant]
     Dosage: UNK
  12. NOVOLOG [Concomitant]
     Dosage: UNK
  13. SIMVASTATIN [Concomitant]
     Dosage: UNK
  14. ESTRADIOL [Concomitant]
     Dosage: UNK

REACTIONS (5)
  - DYSKINESIA [None]
  - HYPOAESTHESIA [None]
  - MUSCLE DISORDER [None]
  - MUSCLE SPASMS [None]
  - NERVOUS SYSTEM DISORDER [None]
